FAERS Safety Report 9994741 (Version 2)
Quarter: 2014Q1

REPORT INFORMATION
  Report Type: Spontaneous
  Country: JP (occurrence: JP)
  Receive Date: 20140311
  Receipt Date: 20140324
  Transmission Date: 20141002
  Serious: No
  Sender: FDA-Public Use
  Company Number: JP-UCBSA-114340

PATIENT
  Age: 54 Year
  Sex: Female

DRUGS (2)
  1. E KEPPRA [Suspect]
     Dosage: 500 MG TABLET
     Route: 048
     Dates: start: 20140128
  2. LOXONIN [Concomitant]
     Dosage: 1000MG DAILY
     Route: 048

REACTIONS (1)
  - White blood cell count decreased [Recovered/Resolved]
